FAERS Safety Report 4367067-0 (Version None)
Quarter: 2004Q2

REPORT INFORMATION
  Report Type: 
  Country: None (occurrence: None)
  Receive Date: 20040528
  Receipt Date: 20040513
  Transmission Date: 20050107
  Serious: Yes (Hospitalization)
  Sender: FDA-Public Use
  Company Number: AU-MERCK-0405AUS00109

PATIENT
  Sex: Female

DRUGS (1)
  1. FOSAMAX [Suspect]
     Indication: OSTEOPOROSIS
     Route: 048
     Dates: start: 20021101

REACTIONS (6)
  - ABDOMINAL DISCOMFORT [None]
  - DYSPHAGIA [None]
  - FLATULENCE [None]
  - HEADACHE [None]
  - INFECTION [None]
  - NAUSEA [None]
